FAERS Safety Report 23684215 (Version 1)
Quarter: 2024Q1

REPORT INFORMATION
  Report Type: Spontaneous
  Country: US (occurrence: US)
  Receive Date: 20240328
  Receipt Date: 20240328
  Transmission Date: 20240410
  Serious: No
  Sender: FDA-Public Use
  Company Number: US-Evolus, Inc.-2023EV000341

PATIENT
  Age: 39 Year
  Sex: Female

DRUGS (2)
  1. JEUVEAU [Suspect]
     Active Substance: PRABOTULINUMTOXINA-XVFS
     Indication: Skin wrinkling
     Dosage: 4 UNITS AT 5 INJECTION POINTS
     Dates: start: 20230921, end: 20230921
  2. JEUVEAU [Suspect]
     Active Substance: PRABOTULINUMTOXINA-XVFS
     Indication: Product used for unknown indication
     Dosage: GLABELLA 20 U, FRONTALIS 20 U.
     Dates: start: 20230928, end: 20230928

REACTIONS (2)
  - Drug effect less than expected [Unknown]
  - Off label use [Unknown]
